FAERS Safety Report 5176705-4 (Version None)
Quarter: 2006Q4

REPORT INFORMATION
  Report Type: 
  Country: None (occurrence: None)
  Receive Date: 20061218
  Receipt Date: 20061205
  Transmission Date: 20070319
  Serious: Yes (Hospitalization)
  Sender: FDA-Public Use
  Company Number: PHHO2006JP20672

PATIENT
  Age: 75 Year
  Sex: Female
  Weight: 49 kg

DRUGS (9)
  1. DIOVAN [Suspect]
     Indication: HYPERTENSION
     Dosage: 80 MG, QD
     Route: 048
     Dates: start: 20031015
  2. WARFARIN SODIUM [Concomitant]
  3. ALLOPURINOL [Concomitant]
  4. LASIX [Concomitant]
  5. GASTER [Concomitant]
  6. ALDACTONE [Concomitant]
  7. ADALAT [Concomitant]
  8. PLETAL [Concomitant]
  9. PAXIL [Concomitant]

REACTIONS (3)
  - AORTIC DISSECTION [None]
  - ATRIAL FIBRILLATION [None]
  - CHEST PAIN [None]
